FAERS Safety Report 20714632 (Version 2)
Quarter: 2022Q2

REPORT INFORMATION
  Report Type: Spontaneous
  Country: US (occurrence: US)
  Receive Date: 20220415
  Receipt Date: 20220524
  Transmission Date: 20220721
  Serious: No
  Sender: FDA-Public Use
  Company Number: US-BIOVITRUM-2022US04895

PATIENT
  Age: 0 Year
  Sex: Female

DRUGS (2)
  1. SYNAGIS [Suspect]
     Active Substance: PALIVIZUMAB
     Indication: Premature baby
     Dosage: 111.7500
     Route: 030
     Dates: start: 20220203
  2. SYNAGIS [Suspect]
     Active Substance: PALIVIZUMAB
     Dosage: 111.7500
     Route: 030
     Dates: start: 20220309

REACTIONS (4)
  - Cough [Unknown]
  - Nasal congestion [Unknown]
  - Vomiting [Not Recovered/Not Resolved]
  - Off label use [Unknown]

NARRATIVE: CASE EVENT DATE: 20220405
